FAERS Safety Report 15099980 (Version 1)
Quarter: 2018Q3

REPORT INFORMATION
  Report Type: Report from Study
  Country: NL (occurrence: NL)
  Receive Date: 20180703
  Receipt Date: 20180703
  Transmission Date: 20181010
  Serious: Yes (Other)
  Sender: FDA-Public Use
  Company Number: NL-TEVA-2018-NL-918031

PATIENT
  Sex: Male

DRUGS (11)
  1. LYRICA CAPS 150 MG [Concomitant]
     Dosage: 300 MILLIGRAM DAILY;
  2. HYDROCORTISONE 10 MG [Concomitant]
  3. DIAZEPAM 10 MG [Concomitant]
     Active Substance: DIAZEPAM
     Dosage: 10 MILLIGRAM DAILY;
  4. METHYLPHENIDATE 10 MG [Concomitant]
     Route: 065
  5. KETOCONAZOL OINMENT [Concomitant]
  6. COPAXONE [Suspect]
     Active Substance: GLATIRAMER ACETATE
     Indication: RELAPSING-REMITTING MULTIPLE SCLEROSIS
     Route: 058
     Dates: start: 20170626, end: 20180601
  7. THIAMINE 50 MG [Concomitant]
     Dosage: 100 MILLIGRAM DAILY;
  8. IBUPROFEN 600 MG [Concomitant]
     Active Substance: IBUPROFEN
     Dosage: 1800 MILLIGRAM DAILY;
  9. OMEPRAZOL 40 MG [Concomitant]
     Active Substance: OMEPRAZOLE
     Dosage: 40 MILLIGRAM DAILY;
  10. PROMETHAZINE 25 MG [Concomitant]
     Dosage: 25 MILLIGRAM DAILY;
  11. NICOTINEL [Concomitant]
     Dosage: 1 DOSAGE FORMS DAILY;

REACTIONS (5)
  - Erectile dysfunction [Recovered/Resolved]
  - Arthropathy [Not Recovered/Not Resolved]
  - Treatment noncompliance [Unknown]
  - Incontinence [Recovered/Resolved]
  - Knee operation [Recovering/Resolving]

NARRATIVE: CASE EVENT DATE: 2017
